FAERS Safety Report 26177635 (Version 1)
Quarter: 2025Q4

REPORT INFORMATION
  Report Type: Report from Study
  Country: GB (occurrence: GB)
  Receive Date: 20251219
  Receipt Date: 20251219
  Transmission Date: 20260117
  Serious: Yes (Other)
  Sender: JOHNSON AND JOHNSON
  Company Number: GB-JNJFOC-20251153897

PATIENT
  Age: 80 Year
  Sex: Male

DRUGS (1)
  1. ERLEADA [Suspect]
     Active Substance: APALUTAMIDE
     Indication: Prostate cancer
     Route: 048
     Dates: start: 20221208

REACTIONS (4)
  - Myocardial infarction [Unknown]
  - Diarrhoea [Unknown]
  - Dyspepsia [Unknown]
  - Swelling [Unknown]

NARRATIVE: CASE EVENT DATE: 20250601
